FAERS Safety Report 4853616-2 (Version None)
Quarter: 2005Q4

REPORT INFORMATION
  Report Type: 
  Country: None (occurrence: None)
  Receive Date: 20051212
  Receipt Date: 20051121
  Transmission Date: 20060501
  Serious: Yes (Hospitalization)
  Sender: FDA-Public Use
  Company Number: PL200512000169

PATIENT
  Age: 32 Year
  Sex: Female

DRUGS (2)
  1. HUMULIN U [Suspect]
     Indication: GESTATIONAL DIABETES
     Dosage: SEE IMAGE
  2. LISPRO (LISPRO) [Suspect]
     Indication: GESTATIONAL DIABETES
     Dosage: SEE IMAGE

REACTIONS (7)
  - BLOOD GLUCOSE INCREASED [None]
  - DERMATITIS ALLERGIC [None]
  - DRUG EXPOSURE DURING PREGNANCY [None]
  - INJECTION SITE INDURATION [None]
  - INJECTION SITE REACTION [None]
  - PREGNANCY INDUCED HYPERTENSION [None]
  - TYPE I HYPERSENSITIVITY [None]
